FAERS Safety Report 6374170-2 (Version None)
Quarter: 2009Q3

REPORT INFORMATION
  Report Type: 
  Country: None (occurrence: None)
  Receive Date: 20090924
  Receipt Date: 20090618
  Transmission Date: 20100115
  Serious: No
  Sender: FDA-Public Use
  Company Number: US-ASTRAZENECA-2009UW16166

PATIENT
  Age: 54 Year
  Sex: Male

DRUGS (2)
  1. SEROQUEL XR [Suspect]
     Dosage: 300 MG
     Route: 048
  2. LAMICTAL [Concomitant]

REACTIONS (1)
  - DYSPNOEA [None]
